FAERS Safety Report 11601771 (Version 2)
Quarter: 2015Q4

REPORT INFORMATION
  Report Type: Spontaneous
  Country: US (occurrence: US)
  Receive Date: 20151006
  Receipt Date: 20151008
  Transmission Date: 20160304
  Serious: No
  Sender: FDA-Public Use
  Company Number: US-AMGEN-USASP2015053199

PATIENT
  Sex: Female

DRUGS (1)
  1. PROLIA [Suspect]
     Active Substance: DENOSUMAB
     Indication: OSTEOGENESIS IMPERFECTA
     Dosage: UNK UNK, UNK
     Route: 065

REACTIONS (4)
  - Cardiac disorder [Unknown]
  - Inappropriate schedule of drug administration [Unknown]
  - Aortic valve disease [Unknown]
  - Off label use [Unknown]
